FAERS Safety Report 6012783-8 (Version None)
Quarter: 2008Q4

REPORT INFORMATION
  Report Type: 
  Country: None (occurrence: None)
  Receive Date: 20081219
  Receipt Date: 20081210
  Transmission Date: 20090506
  Serious: Yes (Other)
  Sender: FDA-Public Use
  Company Number: US-JNJFOC-20081203108

PATIENT
  Age: 48 Year
  Sex: Female
  Weight: 61.24 kg

DRUGS (4)
  1. TYLENOL COLD MULTI-SYMPTOM DAYTIME  COOL BURST [Suspect]
     Indication: NASOPHARYNGITIS
     Route: 048
  2. HYDROCHLOROTHIAZIDE [Concomitant]
     Indication: DIURETIC THERAPY
  3. METOPROLOL TARTRATE [Concomitant]
     Indication: HYPERTENSION
  4. LORTAB [Concomitant]
     Indication: FIBROMYALGIA

REACTIONS (7)
  - BLOOD PRESSURE INCREASED [None]
  - DYSPNOEA [None]
  - EATING DISORDER [None]
  - HEART RATE INCREASED [None]
  - INSOMNIA [None]
  - MALAISE [None]
  - NIGHTMARE [None]
